FAERS Safety Report 7953907-2 (Version None)
Quarter: 2011Q4

REPORT INFORMATION
  Report Type: 
  Country: None (occurrence: None)
  Receive Date: 20111129
  Receipt Date: 20111114
  Transmission Date: 20120403
  Serious: Yes (Death, Hospitalization)
  Sender: FDA-Public Use
  Company Number: 2011MA016421

PATIENT
  Sex: Female
  Weight: 41.7309 kg

DRUGS (16)
  1. MIRTAZAPINE [Concomitant]
  2. ANTI-EMETICS [Concomitant]
  3. CIPROFLOXACIN [Concomitant]
  4. LASIX [Concomitant]
  5. CLARITIN [Concomitant]
  6. REMERON [Concomitant]
  7. VERAPAMIL HCL [Concomitant]
  8. IV FLUIDS [Concomitant]
  9. DIGOXIN [Suspect]
     Indication: ATRIAL FIBRILLATION
     Dosage: 0.125 MG;QD;PO
     Route: 048
     Dates: start: 20080401, end: 20080413
  10. AMBIEN [Concomitant]
  11. ATIVAN [Concomitant]
  12. SYNTHROID [Concomitant]
  13. ASPIRIN [Concomitant]
  14. CLONIDINE [Concomitant]
  15. COUMADIN [Concomitant]
  16. ANTIBIOTICS [Concomitant]

REACTIONS (11)
  - LACERATION [None]
  - PAIN [None]
  - DEHYDRATION [None]
  - CARDIAC FAILURE CONGESTIVE [None]
  - ARTERIOSCLEROSIS CORONARY ARTERY [None]
  - MULTIPLE INJURIES [None]
  - UNRESPONSIVE TO STIMULI [None]
  - CELLULITIS [None]
  - EXTRASYSTOLES [None]
  - GASTROENTERITIS [None]
  - CARDIAC MURMUR [None]
